FAERS Safety Report 10058366 (Version 2)
Quarter: 2014Q2

REPORT INFORMATION
  Report Type: Spontaneous
  Country: US (occurrence: US)
  Receive Date: 20140404
  Receipt Date: 20140514
  Transmission Date: 20141212
  Serious: Yes (Other)
  Sender: FDA-Public Use
  Company Number: US-PERRIGO-14US003215

PATIENT
  Age: 62 Year
  Sex: Female
  Weight: 70.3 kg

DRUGS (3)
  1. NAPROXEN SODIUM 220 MG 368 [Suspect]
     Indication: HEADACHE
     Dosage: 220 MG, SINGLE
     Route: 048
     Dates: start: 20131216, end: 20131216
  2. LIPID MODIFYING AGENTS [Concomitant]
     Indication: BLOOD CHOLESTEROL INCREASED
     Dosage: UNK, UNK
     Route: 065
     Dates: start: 2009
  3. LUNESTA [Concomitant]
     Indication: INSOMNIA
     Dosage: UNK, UNK
     Route: 048
     Dates: start: 2009

REACTIONS (15)
  - Blood pressure decreased [Recovered/Resolved]
  - Abdominal pain upper [Not Recovered/Not Resolved]
  - Anaphylactic shock [Recovered/Resolved]
  - Anaphylactic reaction [Recovered/Resolved]
  - Dyspepsia [Recovered/Resolved]
  - Dyspnoea [Recovered/Resolved]
  - Dysphagia [Recovered/Resolved]
  - Nausea [Recovered/Resolved]
  - Feeling hot [Recovered/Resolved]
  - Urticaria [Recovered/Resolved]
  - Erythema [Recovered/Resolved]
  - Tremor [Recovered/Resolved]
  - Hypoaesthesia [Recovered/Resolved]
  - Panic attack [Recovered/Resolved]
  - Oesophageal pain [Not Recovered/Not Resolved]
